FAERS Safety Report 10249695 (Version 1)
Quarter: 2014Q2

REPORT INFORMATION
  Report Type: Spontaneous
  Country: FR (occurrence: FR)
  Receive Date: 20140620
  Receipt Date: 20140620
  Transmission Date: 20141212
  Serious: Yes (Other)
  Sender: FDA-Public Use
  Company Number: FR-JNJFOC-20140611864

PATIENT
  Age: 17 Year
  Sex: Female

DRUGS (4)
  1. IBUPROFEN [Suspect]
     Indication: PAIN
     Route: 048
     Dates: start: 201304
  2. IBUPROFEN [Suspect]
     Indication: PAIN
     Dosage: 4 TO 5 TIMES A DAY
     Route: 048
     Dates: start: 201306
  3. IBUPROFEN [Suspect]
     Indication: PAIN
     Route: 048
  4. IBUPROFEN [Suspect]
     Indication: PAIN
     Route: 048
     Dates: start: 201302

REACTIONS (2)
  - Drug dependence [Unknown]
  - Overdose [Unknown]
